FAERS Safety Report 4896035-5 (Version None)
Quarter: 2005Q4

REPORT INFORMATION
  Report Type: 
  Country: None (occurrence: None)
  Receive Date: 20051220
  Receipt Date: 20050216
  Transmission Date: 20060501
  Serious: Yes (Other)
  Sender: FDA-Public Use
  Company Number: 01081356

PATIENT
  Age: 33 Year
  Sex: Female
  Weight: 107 kg

DRUGS (6)
  1. ENBREL [Suspect]
     Indication: RHEUMATOID ARTHRITIS
     Dosage: 25 MG, BIW, SC
     Route: 058
     Dates: start: 20010105, end: 20010627
  2. CELECOXIB [Concomitant]
  3. SULFASALAZINE [Concomitant]
  4. ETHINYL ESTRADIOL/NORGESTIMATE [Concomitant]
  5. BUSPIRONE [Concomitant]
  6. PERI-COLACE [Concomitant]

REACTIONS (2)
  - MULTIPLE SCLEROSIS [None]
  - SJOGREN'S SYNDROME [None]
